FAERS Safety Report 11676813 (Version 2)
Quarter: 2018Q1

REPORT INFORMATION
  Report Type: Spontaneous
  Country: NO (occurrence: NO)
  Receive Date: 20151028
  Receipt Date: 20180205
  Transmission Date: 20180508
  Serious: Yes (Hospitalization, Disabling, Other)
  Sender: FDA-Public Use
  Company Number: NO-FRI-1000080382

PATIENT
  Age: 24 Year
  Sex: Female

DRUGS (3)
  1. ESCITALOPRAM OXALATE - BP [Suspect]
     Active Substance: ESCITALOPRAM OXALATE
     Indication: PRODUCT USED FOR UNKNOWN INDICATION
     Dosage: UNK
     Route: 065
     Dates: end: 20131110
  2. LAMICTAL [Suspect]
     Active Substance: LAMOTRIGINE
     Indication: PRODUCT USED FOR UNKNOWN INDICATION
     Dosage: UNK
     Dates: start: 20130830, end: 20131110
  3. SEROQUEL [Suspect]
     Active Substance: QUETIAPINE FUMARATE
     Indication: PRODUCT USED FOR UNKNOWN INDICATION
     Dosage: UNK
     Route: 065
     Dates: end: 20131110

REACTIONS (45)
  - Eye injury [Not Recovered/Not Resolved]
  - Acinetobacter bacteraemia [Recovered/Resolved]
  - Wound infection staphylococcal [Recovered/Resolved]
  - Dacryostenosis acquired [Not Recovered/Not Resolved]
  - Visual impairment [Not Recovered/Not Resolved]
  - Atrophy of globe [Recovered/Resolved]
  - Ulcer [Unknown]
  - Lens disorder [Unknown]
  - Ocular hyperaemia [Recovered/Resolved]
  - Headache [Recovered/Resolved]
  - Entropion [Not Recovered/Not Resolved]
  - Dry eye [Not Recovered/Not Resolved]
  - Face oedema [Recovered/Resolved]
  - Keratopathy [Recovered/Resolved with Sequelae]
  - Toxic epidermal necrolysis [Recovered/Resolved]
  - Body temperature increased [Recovered/Resolved]
  - Eye pain [Recovered/Resolved]
  - Photophobia [Not Recovered/Not Resolved]
  - Vulvovaginal erythema [Unknown]
  - Sepsis [Recovering/Resolving]
  - Obstructive airways disorder [Recovered/Resolved]
  - Trichiasis [Not Recovered/Not Resolved]
  - Injury corneal [Unknown]
  - Wound healing normal [Recovered/Resolved]
  - Eyelid oedema [Recovered/Resolved]
  - Migraine [Recovered/Resolved]
  - Lacrimation increased [Not Recovered/Not Resolved]
  - Symblepharon [Recovered/Resolved with Sequelae]
  - Staphylococcal bacteraemia [Recovered/Resolved]
  - Rash [Recovered/Resolved]
  - Alopecia [Recovered/Resolved]
  - Anxiety [Recovered/Resolved]
  - Tachycardia [Recovered/Resolved]
  - Drug ineffective [Unknown]
  - Eye oedema [Unknown]
  - Inappropriate affect [Recovered/Resolved]
  - Cataract [Not Recovered/Not Resolved]
  - Generalised erythema [Unknown]
  - Skin exfoliation [Recovered/Resolved]
  - Oral mucosal blistering [Unknown]
  - Oral pain [Recovered/Resolved]
  - Blister [Recovered/Resolved]
  - Mucous membrane disorder [Unknown]
  - Confusional state [Recovered/Resolved]
  - Stevens-Johnson syndrome [Recovered/Resolved]

NARRATIVE: CASE EVENT DATE: 201311
